FAERS Safety Report 4688784-9 (Version None)
Quarter: 2005Q2

REPORT INFORMATION
  Report Type: 
  Country: None (occurrence: None)
  Receive Date: 20050610
  Receipt Date: 20050610
  Transmission Date: 20051028
  Serious: Yes (Other)
  Sender: FDA-Public Use
  Company Number: None

PATIENT
  Sex: Male
  Weight: 55 kg

DRUGS (3)
  1. VANCOMYCIN [Suspect]
     Indication: STAPHYLOCOCCAL INFECTION
     Dosage: 1000 MG IVPB X 2 500 MG IVPB X 1
     Route: 042
  2. VANCOMYCIN [Suspect]
     Indication: UROSEPSIS
     Dosage: 1000 MG IVPB X 2 500 MG IVPB X 1
     Route: 042
  3. HEPARIN [Concomitant]

REACTIONS (2)
  - PLATELET AGGREGATION ABNORMAL [None]
  - THROMBOCYTOPENIA [None]
